FAERS Safety Report 12201052 (Version 2)
Quarter: 2016Q2

REPORT INFORMATION
  Report Type: Spontaneous
  Country: US (occurrence: US)
  Receive Date: 20160322
  Receipt Date: 20160415
  Transmission Date: 20160815
  Serious: Yes (Other)
  Sender: FDA-Public Use
  Company Number: US-INDIVIOR LIMITED-INDV-088980-2016

PATIENT
  Age: 55 Year
  Sex: Female

DRUGS (5)
  1. ZOLOFT P [Concomitant]
     Indication: DEPRESSION
     Dosage: UNK, DAILY
     Route: 048
     Dates: start: 1996
  2. SUBOXONE [Suspect]
     Active Substance: BUPRENORPHINE HYDROCHLORIDE\NALOXONE HYDROCHLORIDE
     Dosage: 6MG, DAILY
     Route: 060
     Dates: start: 201507, end: 201601
  3. SUBOXONE [Suspect]
     Active Substance: BUPRENORPHINE HYDROCHLORIDE\NALOXONE HYDROCHLORIDE
     Indication: DRUG DEPENDENCE
     Dosage: 4MG, QD
     Route: 060
     Dates: start: 201507, end: 201601
  4. SUBOXONE [Suspect]
     Active Substance: BUPRENORPHINE HYDROCHLORIDE\NALOXONE HYDROCHLORIDE
     Dosage: TAKING VARIOUS DOSES DOWN TO 2.5MG,DAILY BY CUTTING
     Route: 060
     Dates: start: 201507, end: 201601
  5. METHADONE [Suspect]
     Active Substance: METHADONE HYDROCHLORIDE
     Indication: DRUG DEPENDENCE
     Dosage: UNK, FOR 5 YEARS
     Route: 065

REACTIONS (11)
  - Hallucination, visual [Not Recovered/Not Resolved]
  - Drug ineffective for unapproved indication [Unknown]
  - Suicidal ideation [Unknown]
  - Product preparation error [Recovered/Resolved]
  - Dizziness [Not Recovered/Not Resolved]
  - Feeling abnormal [Not Recovered/Not Resolved]
  - Depression [Recovered/Resolved]
  - Palpitations [Not Recovered/Not Resolved]
  - Cold sweat [Not Recovered/Not Resolved]
  - Pain [Not Recovered/Not Resolved]
  - Visual impairment [Unknown]

NARRATIVE: CASE EVENT DATE: 2015
